FAERS Safety Report 5799261-6 (Version None)
Quarter: 2008Q3

REPORT INFORMATION
  Report Type: 
  Country: None (occurrence: None)
  Receive Date: 20080702
  Receipt Date: 20080625
  Transmission Date: 20090109
  Serious: Yes (Other)
  Sender: FDA-Public Use
  Company Number: DE-PFIZER INC-2008049340

PATIENT
  Sex: Male
  Weight: 93 kg

DRUGS (1)
  1. SORTIS [Suspect]
     Indication: HYPERCHOLESTEROLAEMIA
     Dosage: DAILY DOSE:20MG
     Route: 048

REACTIONS (4)
  - ARTHROPATHY [None]
  - BLOOD CREATINE PHOSPHOKINASE INCREASED [None]
  - BLOOD CREATINE PHOSPHOKINASE MB INCREASED [None]
  - MUSCLE DISORDER [None]
